FAERS Safety Report 8041758-2 (Version None)
Quarter: 2012Q1

REPORT INFORMATION
  Report Type: 
  Country: None (occurrence: None)
  Receive Date: 20120112
  Receipt Date: 20120104
  Transmission Date: 20120608
  Serious: Yes (Hospitalization, Other)
  Sender: FDA-Public Use
  Company Number: FR-PFIZER INC-2012007126

PATIENT
  Age: 71 Year
  Sex: Male

DRUGS (8)
  1. DIAMICRON [Suspect]
     Dosage: UNK
     Dates: end: 20110115
  2. LASIX [Concomitant]
     Dosage: UNK
  3. NOZINAN [Concomitant]
     Dosage: UNK
  4. GLUCOPHAGE [Suspect]
     Dosage: UNK
     Dates: end: 20110115
  5. ORBENIN CAP [Concomitant]
     Dosage: UNK
  6. LEPTICUR [Concomitant]
     Dosage: UNK
  7. ATHYMIL [Concomitant]
     Dosage: UNK
  8. RAMIPRIL [Suspect]
     Dosage: UNK
     Dates: end: 20101130

REACTIONS (2)
  - RASH [None]
  - LYMPHADENOPATHY [None]
